FAERS Safety Report 6558410-2 (Version None)
Quarter: 2010Q1

REPORT INFORMATION
  Report Type: 
  Country: None (occurrence: None)
  Receive Date: 20100129
  Receipt Date: 20100120
  Transmission Date: 20100710
  Serious: Yes (Other)
  Sender: FDA-Public Use
  Company Number: US-JNJFOC-20100109382

PATIENT
  Sex: Female
  Weight: 108.86 kg

DRUGS (7)
  1. SANDOZ FENTANYL TRANSDERMAL SYSTEM [Suspect]
     Indication: NEURALGIA
     Dosage: 100 UG/HR + 12.5 UG/HR PATCH
     Route: 062
  2. SANDOZ FENTANYL TRANSDERMAL SYSTEM [Suspect]
     Indication: BACK PAIN
     Dosage: 100 UG/HR + 12.5 UG/HR PATCH
     Route: 062
  3. FENTANYL CITRATE [Suspect]
     Indication: NEURALGIA
     Dosage: 100 UG/HR + 12.5 UG/HR PATCH
     Route: 062
  4. FENTANYL CITRATE [Suspect]
     Indication: BACK PAIN
     Dosage: 100 UG/HR + 12.5 UG/HR PATCH
     Route: 062
  5. VICODIN [Concomitant]
     Indication: BREAKTHROUGH PAIN
     Dosage: 5/325 MG
     Route: 048
  6. DARVON [Concomitant]
     Indication: BREAKTHROUGH PAIN
     Route: 048
  7. UNKNOWN MEDICATION [Concomitant]
     Route: 065

REACTIONS (7)
  - DRUG ADMINISTERED AT INAPPROPRIATE SITE [None]
  - DRUG DOSE OMISSION [None]
  - DRUG INEFFECTIVE [None]
  - FALL [None]
  - PRODUCT QUALITY ISSUE [None]
  - SPINAL FRACTURE [None]
  - WRONG TECHNIQUE IN DRUG USAGE PROCESS [None]
